FAERS Safety Report 8341002-2 (Version None)
Quarter: 2012Q2

REPORT INFORMATION
  Report Type: 
  Country: None (occurrence: None)
  Receive Date: 20120507
  Receipt Date: 20120427
  Transmission Date: 20120825
  Serious: Yes (Hospitalization)
  Sender: FDA-Public Use
  Company Number: JP-VERTEX PHARMACEUTICALS INC.-AE-2012-003955

PATIENT
  Age: 69 Year
  Sex: Female

DRUGS (16)
  1. PEG-INTRON [Concomitant]
     Indication: HEPATITIS C
     Route: 058
     Dates: start: 20120124, end: 20120313
  2. REBETOL [Concomitant]
     Route: 048
     Dates: start: 20120203, end: 20120214
  3. WARFARIN SODIUM [Concomitant]
     Route: 048
     Dates: end: 20120312
  4. MUCOSTA [Concomitant]
     Route: 048
     Dates: start: 20120123, end: 20120220
  5. MAGMITT [Concomitant]
     Route: 048
     Dates: start: 20120322, end: 20120328
  6. ZOLPIDEM [Concomitant]
     Route: 048
  7. LANIRAPID [Concomitant]
     Route: 048
     Dates: end: 20120131
  8. WARFARIN SODIUM [Concomitant]
     Route: 048
     Dates: end: 20120206
  9. TELAVIC (TELAPREVIR) [Suspect]
     Indication: HEPATITIS C
     Route: 048
     Dates: start: 20120124, end: 20120319
  10. NEO-MERCAZOLE TAB [Concomitant]
     Route: 048
  11. REBETOL [Concomitant]
     Indication: HEPATITIS C
     Route: 048
     Dates: start: 20120124, end: 20120202
  12. REBETOL [Concomitant]
     Route: 048
     Dates: start: 20120215, end: 20120319
  13. VERAPAMIL HCL [Concomitant]
     Route: 048
  14. WARFARIN SODIUM [Concomitant]
     Route: 048
     Dates: start: 20120313
  15. LOXOPROFEN [Concomitant]
     Route: 048
     Dates: start: 20120123, end: 20120220
  16. LEVOFLOXACIN [Concomitant]
     Route: 048
     Dates: start: 20120326, end: 20120329

REACTIONS (2)
  - CARDIAC FAILURE [None]
  - HAEMOGLOBIN DECREASED [None]
